FAERS Safety Report 14401895 (Version 2)
Quarter: 2018Q1

REPORT INFORMATION
  Report Type: Spontaneous
  Country: US (occurrence: US)
  Receive Date: 20180117
  Receipt Date: 20180123
  Transmission Date: 20180509
  Serious: Yes (Death)
  Sender: FDA-Public Use
  Company Number: US-FRESENIUS MEDICAL CARE RENAL THERAPIES GROUP-FMC-1801-000083

PATIENT
  Age: 71 Year
  Sex: Male
  Weight: 84.9 kg

DRUGS (12)
  1. MIRTAZAPINE. [Concomitant]
     Active Substance: MIRTAZAPINE
  2. CALCITRIOL. [Concomitant]
     Active Substance: CALCITRIOL
     Dosage: TAKE ONE DOSE EVERY MWF
  3. INSULIN LISPRO [Concomitant]
     Active Substance: INSULIN LISPRO
  4. WARFARIN [Concomitant]
     Active Substance: WARFARIN
  5. DELFLEX [Suspect]
     Active Substance: CALCIUM CHLORIDE\DEXTROSE\MAGNESIUM CHLORIDE\SODIUM CHLORIDE\SODIUM LACTATE
     Indication: END STAGE RENAL DISEASE
     Route: 033
  6. CHOLECALCIFEROL [Concomitant]
     Active Substance: CHOLECALCIFEROL
     Dosage: 1000 UNIT TABLET DAILY.
  7. FINASTERIDE. [Concomitant]
     Active Substance: FINASTERIDE
  8. MUPIROCIN. [Concomitant]
     Active Substance: MUPIROCIN
  9. CARVEDILOL. [Concomitant]
     Active Substance: CARVEDILOL
  10. ALLOPURINOL. [Concomitant]
     Active Substance: ALLOPURINOL
  11. ATORVASTATIN [Concomitant]
     Active Substance: ATORVASTATIN
  12. ACETAMINOPHEN. [Concomitant]
     Active Substance: ACETAMINOPHEN
     Dosage: TAKE 650 MG BY MOUTH EVERY 4 HOURS AS NEEDED FOR PAIN

REACTIONS (1)
  - Cardiac arrest [Fatal]

NARRATIVE: CASE EVENT DATE: 20180109
